FAERS Safety Report 25628572 (Version 1)
Quarter: 2025Q3

REPORT INFORMATION
  Report Type: Spontaneous
  Country: US (occurrence: US)
  Receive Date: 20250731
  Receipt Date: 20250731
  Transmission Date: 20251021
  Serious: Yes (Other)
  Sender: AMGEN
  Company Number: US-AMGEN-USASP2025014639

PATIENT
  Age: 9 Year
  Sex: Female

DRUGS (1)
  1. BEVACIZUMAB [Suspect]
     Active Substance: BEVACIZUMAB
     Indication: Choroidal neovascularisation
     Dosage: 1.25 MILLIGRAM//0.05CC, LOADING DOSES (THREE MONTHLY INJECTION)

REACTIONS (4)
  - Retinal neovascularisation [Unknown]
  - Retinal disorder [Unknown]
  - Drug effective for unapproved indication [Unknown]
  - Off label use [Unknown]
